FAERS Safety Report 13515419 (Version 1)
Quarter: 2017Q2

REPORT INFORMATION
  Report Type: Spontaneous
  Country: US (occurrence: US)
  Receive Date: 20170504
  Receipt Date: 20170504
  Transmission Date: 20170830
  Serious: No
  Sender: FDA-Public Use
  Company Number: US-BAUSCH-BL-2016-013975

PATIENT
  Age: 62 Year
  Sex: Male
  Weight: 104.42 kg

DRUGS (3)
  1. FELODIPINE. [Concomitant]
     Active Substance: FELODIPINE
     Indication: BLOOD PRESSURE INCREASED
     Route: 048
     Dates: start: 201605
  2. ALDARA [Suspect]
     Active Substance: IMIQUIMOD
     Indication: BASAL CELL CARCINOMA
     Dosage: 1 APPLICATION TO THE AFFECTED AREAS ON HIS LEFT FOREARM 5 TIMES A WEEK FOR 6 WEEKS
     Route: 061
     Dates: start: 201605
  3. LISINOPRIL. [Concomitant]
     Active Substance: LISINOPRIL
     Indication: BASAL CELL CARCINOMA
     Route: 048

REACTIONS (3)
  - Application site haemorrhage [Not Recovered/Not Resolved]
  - Scab [Not Recovered/Not Resolved]
  - Erythema [Not Recovered/Not Resolved]

NARRATIVE: CASE EVENT DATE: 2016
